FAERS Safety Report 20607390 (Version 1)
Quarter: 2022Q1

REPORT INFORMATION
  Report Type: Spontaneous
  Country: US (occurrence: None)
  Receive Date: 20220316
  Receipt Date: 20220316
  Transmission Date: 20220423
  Serious: Yes (unspecified)
  Sender: FDA-Public Use
  Company Number: None

PATIENT
  Age: 51 Year
  Sex: Female
  Weight: 51.3 kg

DRUGS (1)
  1. VIVITROL [Suspect]
     Active Substance: NALTREXONE
     Indication: Drug use disorder
     Dosage: OTHER FREQUENCY : ONE TIME SYRINGE;?
     Route: 030

REACTIONS (2)
  - Embolia cutis medicamentosa [None]
  - Rhabdomyolysis [None]

NARRATIVE: CASE EVENT DATE: 20220126
